FAERS Safety Report 12715838 (Version 1)
Quarter: 2016Q3

REPORT INFORMATION
  Report Type: Report from Study
  Country: US (occurrence: US)
  Receive Date: 20160906
  Receipt Date: 20160906
  Transmission Date: 20161109
  Serious: Yes (Other)
  Sender: FDA-Public Use
  Company Number: US-AMGEN-USASL2016116596

PATIENT
  Age: 63 Year
  Sex: Female

DRUGS (3)
  1. ENBREL [Suspect]
     Active Substance: ETANERCEPT
     Indication: RHEUMATOID ARTHRITIS
     Dosage: UNK UNK, QWK
     Route: 065
  2. PLAQUENIL [Concomitant]
     Active Substance: HYDROXYCHLOROQUINE SULFATE
     Dosage: UNK
  3. PREDNISONE. [Concomitant]
     Active Substance: PREDNISONE
     Dosage: UNK

REACTIONS (8)
  - Stress [Unknown]
  - Injection site pain [Unknown]
  - Drug effect incomplete [Unknown]
  - Memory impairment [Unknown]
  - Injection site mass [Recovered/Resolved]
  - Arrhythmia [Unknown]
  - Rheumatoid arthritis [Unknown]
  - Migraine [Unknown]

NARRATIVE: CASE EVENT DATE: 2016
